FAERS Safety Report 16791854 (Version 1)
Quarter: 2019Q3

REPORT INFORMATION
  Report Type: Spontaneous
  Country: US (occurrence: US)
  Receive Date: 20190719
  Receipt Date: 20190719
  Transmission Date: 20191005
  Serious: Yes (Hospitalization)
  Sender: FDA-Public Use
  Company Number: None

PATIENT
  Age: 58 Year
  Sex: Male

DRUGS (1)
  1. BOTOX [Suspect]
     Active Substance: ONABOTULINUMTOXINA
     Dates: start: 201902

REACTIONS (3)
  - Product dose omission [None]
  - Wrong product administered [None]
  - Fatigue [None]

NARRATIVE: CASE EVENT DATE: 20190719
